FAERS Safety Report 10507587 (Version 1)
Quarter: 2014Q4

REPORT INFORMATION
  Report Type: Spontaneous
  Country: US (occurrence: US)
  Receive Date: 20141009
  Receipt Date: 20141009
  Transmission Date: 20150528
  Serious: No
  Sender: FDA-Public Use
  Company Number: US-PFIZER INC-2014273523

PATIENT
  Age: 55 Year
  Sex: Female
  Weight: 61 kg

DRUGS (4)
  1. LYRICA [Suspect]
     Active Substance: PREGABALIN
     Indication: LOCAL SWELLING
     Dosage: 75 MG CAPSULE, (ONCE, NOW AND THEN)
     Route: 048
     Dates: start: 201409
  2. LYRICA [Suspect]
     Active Substance: PREGABALIN
     Indication: BONE PAIN
  3. LYRICA [Suspect]
     Active Substance: PREGABALIN
     Indication: MYALGIA
  4. LYRICA [Suspect]
     Active Substance: PREGABALIN
     Indication: JOINT SWELLING

REACTIONS (2)
  - Nausea [Unknown]
  - Somnolence [Unknown]
